FAERS Safety Report 9881744 (Version 1)
Quarter: 2014Q1

REPORT INFORMATION
  Report Type: Spontaneous
  Country: IT (occurrence: IT)
  Receive Date: 20140207
  Receipt Date: 20140207
  Transmission Date: 20141002
  Serious: Yes (Other)
  Sender: FDA-Public Use
  Company Number: PHHY2014IT011937

PATIENT
  Age: 54 Year
  Sex: Female

DRUGS (2)
  1. LEFLUNOMIDE [Suspect]
     Indication: PSORIATIC ARTHROPATHY
  2. STEROIDS [Concomitant]
     Indication: PSORIATIC ARTHROPATHY

REACTIONS (2)
  - Anaemia megaloblastic [Recovering/Resolving]
  - Dizziness [Unknown]
